FAERS Safety Report 17478276 (Version 1)
Quarter: 2020Q1

REPORT INFORMATION
  Report Type: Report from Study
  Country: FR (occurrence: FR)
  Receive Date: 20200228
  Receipt Date: 20200228
  Transmission Date: 20200409
  Serious: Yes (Hospitalization)
  Sender: FDA-Public Use
  Company Number: FR-JNJFOC-20190924757

PATIENT
  Age: 31 Year
  Sex: Female
  Weight: 73 kg

DRUGS (8)
  1. STELARA [Suspect]
     Active Substance: USTEKINUMAB
     Route: 058
     Dates: start: 20180302
  2. STELARA [Suspect]
     Active Substance: USTEKINUMAB
     Route: 058
     Dates: start: 20190830
  3. STELARA [Suspect]
     Active Substance: USTEKINUMAB
     Indication: PSORIASIS
     Route: 058
     Dates: start: 20161226
  4. OPTIMIZETTE [Concomitant]
     Active Substance: DESOGESTREL
     Route: 065
     Dates: start: 2018
  5. STELARA [Suspect]
     Active Substance: USTEKINUMAB
     Route: 058
     Dates: start: 20170123
  6. STELARA [Suspect]
     Active Substance: USTEKINUMAB
     Route: 058
     Dates: start: 201903, end: 201903
  7. PARACETAMOL [Concomitant]
     Active Substance: ACETAMINOPHEN
  8. EPITOMAX [Concomitant]
     Active Substance: TOPIRAMATE
     Route: 065
     Dates: start: 20190410

REACTIONS (4)
  - Headache [Recovered/Resolved]
  - Incorrect dose administered [Unknown]
  - Off label use [Unknown]
  - Occipital neuralgia [Recovered/Resolved]

NARRATIVE: CASE EVENT DATE: 20180302
